FAERS Safety Report 10229067 (Version 2)
Quarter: 2014Q3

REPORT INFORMATION
  Report Type: Spontaneous
  Country: JP (occurrence: JP)
  Receive Date: 20140610
  Receipt Date: 20140703
  Transmission Date: 20150326
  Serious: Yes (Other)
  Sender: FDA-Public Use
  Company Number: JP-009507513-1406JPN004064

PATIENT
  Age: 39 Year
  Sex: Male

DRUGS (2)
  1. PROPECIA [Suspect]
     Active Substance: FINASTERIDE
     Dosage: ONCE A DAY, DAILY DOSE UNKNOWN
     Route: 048
     Dates: start: 200906, end: 201302
  2. PROPECIA [Suspect]
     Active Substance: FINASTERIDE
     Indication: ALOPECIA
     Dosage: ONCE A DAY, DAILY DOSE UNKNOWN
     Route: 048
     Dates: start: 20131204, end: 20140602

REACTIONS (10)
  - Dyspnoea [Unknown]
  - Coordination abnormal [Recovered/Resolved]
  - Blood pressure increased [Recovered/Resolved]
  - Dyspnoea [Unknown]
  - Convulsion [Recovered/Resolved]
  - Convulsion [Unknown]
  - Anxiety [Recovered/Resolved]
  - Dyspnoea [Recovered/Resolved]
  - Irritability [Recovered/Resolved]
  - Alopecia [Recovering/Resolving]

NARRATIVE: CASE EVENT DATE: 2013
